FAERS Safety Report 6753186-8 (Version None)
Quarter: 2010Q2

REPORT INFORMATION
  Report Type: 
  Country: None (occurrence: None)
  Receive Date: 20100603
  Receipt Date: 20090731
  Transmission Date: 20101027
  Serious: No
  Sender: FDA-Public Use
  Company Number: US-KINGPHARMUSA00001-K200900930

PATIENT

DRUGS (1)
  1. CORTISPORIN [Suspect]
     Dosage: UNK
     Route: 061

REACTIONS (1)
  - BLISTER [None]
